FAERS Safety Report 4475361-8 (Version None)
Quarter: 2004Q4

REPORT INFORMATION
  Report Type: 
  Country: None (occurrence: None)
  Receive Date: 20041014
  Receipt Date: 20041014
  Transmission Date: 20050328
  Serious: Yes (Other)
  Sender: FDA-Public Use
  Company Number: None

PATIENT
  Age: 25 Year
  Sex: Male
  Weight: 144.2439 kg

DRUGS (3)
  1. ATENOLOL [Suspect]
     Indication: ANXIETY
     Dosage: 1 PILL, 50 MG DAILY
     Dates: start: 20040901
  2. ATENOLOL [Suspect]
     Indication: CARDIAC DISORDER
     Dosage: 1 PILL, 50 MG DAILY
     Dates: start: 20040901
  3. PROTONIX [Suspect]
     Indication: GASTROOESOPHAGEAL REFLUX DISEASE
     Dosage: 2 PILLS, 40 MG PER DAY
     Dates: start: 20030101

REACTIONS (1)
  - NO ADVERSE EFFECT [None]
